FAERS Safety Report 24368610 (Version 1)
Quarter: 2024Q3

REPORT INFORMATION
  Report Type: Spontaneous
  Country: US (occurrence: US)
  Receive Date: 20240926
  Receipt Date: 20240926
  Transmission Date: 20241017
  Serious: No
  Sender: ABBVIE
  Company Number: US-ABBVIE-5935718

PATIENT
  Sex: Male
  Weight: 68 kg

DRUGS (9)
  1. CARBIDOPA\LEVODOPA [Suspect]
     Active Substance: CARBIDOPA\LEVODOPA
     Indication: Parkinson^s disease
     Route: 050
     Dates: start: 2019
  2. CARBIDOPA\LEVODOPA [Suspect]
     Active Substance: CARBIDOPA\LEVODOPA
  3. MIDODRINE [Concomitant]
     Active Substance: MIDODRINE
     Indication: Orthostatic hypotension
  4. ATORVASTATIN [Concomitant]
     Active Substance: ATORVASTATIN
     Indication: Cerebrovascular accident
  5. ZOLOFT [Concomitant]
     Active Substance: SERTRALINE HYDROCHLORIDE
     Indication: Depression
  6. COLACE [Concomitant]
     Active Substance: DOCUSATE SODIUM
     Indication: Constipation
  7. ASPIRIN [Concomitant]
     Active Substance: ASPIRIN
     Indication: Cerebrovascular accident
  8. VITAMIN D [Concomitant]
     Active Substance: VITAMIN D NOS
     Indication: Hypovitaminosis
  9. MIRTAZAPINE [Concomitant]
     Active Substance: MIRTAZAPINE
     Indication: Depression

REACTIONS (4)
  - Stoma site irritation [Not Recovered/Not Resolved]
  - Anaemia [Unknown]
  - Stoma site discharge [Not Recovered/Not Resolved]
  - Weight decreased [Unknown]

NARRATIVE: CASE EVENT DATE: 20230101
